FAERS Safety Report 6331265-7 (Version None)
Quarter: 2009Q3

REPORT INFORMATION
  Report Type: 
  Country: None (occurrence: None)
  Receive Date: 20090827
  Receipt Date: 20090824
  Transmission Date: 20100115
  Serious: Yes (Disabling)
  Sender: FDA-Public Use
  Company Number: US-GILEAD-2008-0018161

PATIENT
  Sex: Male
  Weight: 99 kg

DRUGS (7)
  1. LETAIRIS [Suspect]
     Indication: LUNG DISORDER
  2. COUMADIN [Concomitant]
  3. RENEGEL [Concomitant]
  4. INSULIN [Concomitant]
  5. ALLOPURINOL [Concomitant]
  6. CELEXA [Concomitant]
  7. CALCITRIOL [Concomitant]

REACTIONS (2)
  - FLUID RETENTION [None]
  - RENAL FAILURE [None]
